FAERS Safety Report 23403080 (Version 1)
Quarter: 2024Q1

REPORT INFORMATION
  Report Type: Spontaneous
  Country: AU (occurrence: AU)
  Receive Date: 20240116
  Receipt Date: 20240116
  Transmission Date: 20240409
  Serious: Yes (Other)
  Sender: FDA-Public Use
  Company Number: AU-CIPLA LTD.-2024AU00401

PATIENT

DRUGS (7)
  1. BLEOMYCIN SULFATE [Suspect]
     Active Substance: BLEOMYCIN SULFATE
     Indication: Hodgkin^s disease
     Dosage: 17 MILLIGRAM (INTERVAL: 1 CYCLICAL)
     Route: 065
     Dates: start: 1996
  2. MECHLORETHAMINE HYDROCHLORIDE [Suspect]
     Active Substance: MECHLORETHAMINE HYDROCHLORIDE
     Indication: Hodgkin^s disease
     Dosage: 10.2 MILLIGRAM (INTERVAL: 1 CYCLICAL)
     Route: 042
     Dates: start: 1996
  3. DOXORUBICIN HYDROCHLORIDE [Suspect]
     Active Substance: DOXORUBICIN HYDROCHLORIDE
     Indication: Hodgkin^s disease
     Dosage: 60 MILLIGRAM (INTERVAL: 1 CYCLICAL)
     Route: 065
     Dates: start: 1996
  4. PREDNISOLONE [Suspect]
     Active Substance: PREDNISOLONE
     Indication: Hodgkin^s disease
     Dosage: 490 MILLIGRAM (INTERVAL: 1 CYCLICAL)
     Route: 048
     Dates: start: 1996
  5. PROCARBAZINE HYDROCHLORIDE [Suspect]
     Active Substance: PROCARBAZINE HYDROCHLORIDE
     Indication: Hodgkin^s disease
     Dosage: 1225 MILLIGRAM (INTERVAL: 1 CYCLICAL)
     Route: 048
     Dates: start: 1996
  6. VINBLASTINE SULFATE [Suspect]
     Active Substance: VINBLASTINE SULFATE
     Indication: Hodgkin^s disease
     Dosage: 10.2 MILLIGRAM (INTERVAL: 1 CYCLICAL)
     Route: 042
     Dates: start: 1996
  7. VINCRISTINE SULFATE [Suspect]
     Active Substance: VINCRISTINE SULFATE
     Indication: Hodgkin^s disease
     Dosage: 2.4 MILLIGRAM (INTERVAL: 1 CYCLICAL)
     Route: 042
     Dates: start: 1996

REACTIONS (2)
  - Azoospermia [Not Recovered/Not Resolved]
  - Blood follicle stimulating hormone increased [Not Recovered/Not Resolved]
